FAERS Safety Report 18118740 (Version 1)
Quarter: 2020Q3

REPORT INFORMATION
  Report Type: Spontaneous
  Country: US (occurrence: US)
  Receive Date: 20200806
  Receipt Date: 20200806
  Transmission Date: 20201103
  Serious: No
  Sender: FDA-Public Use
  Company Number: US-009507513-2007USA010673

PATIENT
  Age: 37 Year
  Sex: Female

DRUGS (1)
  1. ETONOGESTREL (+) ETHINYL ESTRADIOL [Suspect]
     Active Substance: ETHINYL ESTRADIOL\ETONOGESTREL
     Dosage: 1 RING
     Route: 067

REACTIONS (6)
  - Device use issue [Unknown]
  - Product dose omission issue [Unknown]
  - Metrorrhagia [Unknown]
  - Product prescribing issue [Unknown]
  - Circumstance or information capable of leading to medication error [Unknown]
  - Inappropriate schedule of product administration [Unknown]

NARRATIVE: CASE EVENT DATE: 202007
